FAERS Safety Report 9146660 (Version 1)
Quarter: 2013Q1

REPORT INFORMATION
  Report Type: Spontaneous
  Country: US (occurrence: None)
  Receive Date: 20130228
  Receipt Date: 20130228
  Transmission Date: 20140127
  Serious: Yes (Disabling)
  Sender: FDA-Public Use
  Company Number: None

PATIENT
  Age: 70 Year
  Sex: Female
  Weight: 79.38 kg

DRUGS (1)
  1. CIPROFLOXACIN HCL [Suspect]
     Route: 048
     Dates: start: 20120814, end: 20120819

REACTIONS (5)
  - Gait disturbance [None]
  - Gait disturbance [None]
  - Disability [None]
  - Pain in extremity [None]
  - Pain in extremity [None]
